FAERS Safety Report 7808536-8 (Version None)
Quarter: 2011Q4

REPORT INFORMATION
  Report Type: 
  Country: None (occurrence: None)
  Receive Date: 20111006
  Receipt Date: 20110922
  Transmission Date: 20120403
  Serious: Yes (Life-Threatening)
  Sender: FDA-Public Use
  Company Number: 1052618

PATIENT
  Age: 37 Year
  Sex: Female

DRUGS (6)
  1. ACETAMINOPHEN [Concomitant]
  2. ROCURONIUM BROMIDE [Suspect]
     Dosage: 50MG, ONCE,   , INTRAVENOUS
     Route: 042
  3. PENTOTHAL [Suspect]
     Dosage: 250MCG, ONCE,   , INTRAVENOUS
     Route: 042
  4. METOCLOPRAMIDE [Suspect]
     Dosage: 20MG, ONCE,   , INTRAVENOUS
     Route: 042
  5. MORPHINE SULFATE [Concomitant]
  6. FENTANYL CITRATE [Suspect]
     Dosage: 250MG, ONCE,   , INTRAVENOUS
     Route: 042

REACTIONS (6)
  - RESPIRATORY GAS EXCHANGE DISORDER [None]
  - VENTRICULAR ARRHYTHMIA [None]
  - CARDIAC ARREST [None]
  - ANAPHYLACTIC REACTION [None]
  - BRONCHOSPASM [None]
  - TORSADE DE POINTES [None]
